FAERS Safety Report 25800365 (Version 3)
Quarter: 2025Q4

REPORT INFORMATION
  Report Type: Spontaneous
  Country: EU (occurrence: EU)
  Receive Date: 20250915
  Receipt Date: 20251023
  Transmission Date: 20260118
  Serious: Yes (Other)
  Sender: TEVA
  Company Number: EU-002147023-NVSC2025PL134341

PATIENT
  Age: 48 Year
  Sex: Female

DRUGS (5)
  1. ZOLEDRONIC ACID [Suspect]
     Active Substance: ZOLEDRONIC ACID
     Indication: Hormone receptor positive HER2 negative breast cancer
     Dosage: UNK (EVERY 4 WEEKS, THEN EVERY 6 WEEKS)
     Route: 065
  2. LETROZOLE [Suspect]
     Active Substance: LETROZOLE
     Indication: Hormone receptor positive HER2 negative breast cancer
     Dosage: UNK
     Route: 065
     Dates: start: 20230307
  3. TAMOXIFEN [Suspect]
     Active Substance: TAMOXIFEN
     Indication: Hormone receptor positive HER2 negative breast cancer
     Dosage: UNK
     Route: 065
  4. RIBOCICLIB [Suspect]
     Active Substance: RIBOCICLIB
     Indication: Hormone receptor positive HER2 negative breast cancer
     Dosage: UNK
     Route: 065
     Dates: start: 20230307
  5. PACLITAXEL [Suspect]
     Active Substance: PACLITAXEL
     Indication: Hormone receptor positive HER2 negative breast cancer
     Dosage: UNK (4XAC/12)
     Route: 065
     Dates: end: 202006

REACTIONS (5)
  - Hormone receptor positive HER2 negative breast cancer [Unknown]
  - Back pain [Unknown]
  - Metastases to liver [Unknown]
  - Metastases to bone [Unknown]
  - Malignant neoplasm progression [Unknown]

NARRATIVE: CASE EVENT DATE: 20230113
